FAERS Safety Report 18034004 (Version 1)
Quarter: 2020Q3

REPORT INFORMATION
  Report Type: Spontaneous
  Country: US (occurrence: US)
  Receive Date: 20200716
  Receipt Date: 20200716
  Transmission Date: 20201103
  Serious: Yes (Hospitalization)
  Sender: FDA-Public Use
  Company Number: US-BAYER-2020-141818

PATIENT
  Age: 71 Year
  Sex: Male

DRUGS (1)
  1. NUBEQA [Suspect]
     Active Substance: DAROLUTAMIDE
     Indication: PROSTATE CANCER
     Dosage: 1200 MG, QD/DAY
     Route: 048
     Dates: start: 20200708, end: 20200710

REACTIONS (1)
  - Cardiac failure [Recovering/Resolving]

NARRATIVE: CASE EVENT DATE: 20200710
